FAERS Safety Report 8796029 (Version 1)
Quarter: 2012Q4

REPORT INFORMATION
  Report Type: 
  Country: US (occurrence: US)
  Receive Date: 20120919
  Receipt Date: 20120919
  Transmission Date: 20130627
  Serious: No
  Sender: FDA-Public Use
  Company Number: US-BAYER-2012-090694

PATIENT
  Age: 54 Year
  Sex: Female

DRUGS (4)
  1. AVELOX [Suspect]
     Indication: SINUSITIS
     Dosage: UNK
  2. AVELOX [Suspect]
     Indication: SINUSITIS
     Dosage: 400 mg, QD
     Route: 048
     Dates: start: 20120826, end: 20120828
  3. LOTRONEX [Concomitant]
  4. CODEINE [Concomitant]

REACTIONS (6)
  - Constipation [None]
  - Paraesthesia [Recovered/Resolved]
  - Pruritus [Recovering/Resolving]
  - Chest discomfort [Recovering/Resolving]
  - Anxiety [Recovering/Resolving]
  - Palpitations [Recovering/Resolving]
